FAERS Safety Report 15674037 (Version 1)
Quarter: 2018Q4

REPORT INFORMATION
  Report Type: Spontaneous
  Country: AU (occurrence: AU)
  Receive Date: 20181129
  Receipt Date: 20181129
  Transmission Date: 20190205
  Serious: Yes (Life-Threatening, Hospitalization)
  Sender: FDA-Public Use
  Company Number: AU-MYLANLABS-2018M1088783

PATIENT
  Age: 72 Year
  Sex: Female

DRUGS (6)
  1. OLANZAPINE. [Concomitant]
     Active Substance: OLANZAPINE
     Dosage: UNK
  2. CARBIMAZOLE [Concomitant]
     Active Substance: CARBIMAZOLE
     Dosage: UNK
  3. CARNITINE [Concomitant]
     Active Substance: CARNITINE
     Dosage: UNK, COMMENCED 3 DAYS LATER AFTER THE PATIENT WAS SLOW TO WAKE
  4. VALPROIC ACID. [Suspect]
     Active Substance: VALPROIC ACID
     Indication: ABNORMAL BEHAVIOUR
     Dosage: 1 GRAM, BD
  5. VALPROIC ACID. [Suspect]
     Active Substance: VALPROIC ACID
     Dosage: 1.5 GRAM
  6. OMEPRAZOLE. [Concomitant]
     Active Substance: OMEPRAZOLE
     Dosage: 20 MILLIGRAM

REACTIONS (2)
  - Toxic encephalopathy [Recovered/Resolved]
  - Extra dose administered [Unknown]
